FAERS Safety Report 18272790 (Version 1)
Quarter: 2020Q3

REPORT INFORMATION
  Report Type: Spontaneous
  Country: US (occurrence: US)
  Receive Date: 20200916
  Receipt Date: 20200916
  Transmission Date: 20201103
  Serious: Yes (Hospitalization)
  Sender: FDA-Public Use
  Company Number: None

PATIENT
  Sex: Female

DRUGS (1)
  1. CAPECITABINE 500MG NOVADOZ PHARMACEUTICALS [Suspect]
     Active Substance: CAPECITABINE
     Indication: COLON CANCER
     Route: 048
     Dates: start: 20200814

REACTIONS (6)
  - Vomiting [None]
  - Vaginal haemorrhage [None]
  - Hand-foot-and-mouth disease [None]
  - Diarrhoea [None]
  - Renal pain [None]
  - Weight decreased [None]
